FAERS Safety Report 9422331 (Version 2)
Quarter: 2013Q3

REPORT INFORMATION
  Report Type: Report from Study
  Country: US (occurrence: US)
  Receive Date: 20130726
  Receipt Date: 20130923
  Transmission Date: 20140515
  Serious: Yes (Other)
  Sender: FDA-Public Use
  Company Number: US-SANOFI-AVENTIS-2013SA060535

PATIENT
  Age: 70 Year
  Sex: Female
  Weight: 63.95 kg

DRUGS (17)
  1. AUBAGIO [Suspect]
     Indication: MULTIPLE SCLEROSIS
     Dosage: TAKEN FROM: 13 DAYS AGO
     Route: 048
     Dates: start: 20130524, end: 20130702
  2. HYDROCHLOROTHIAZIDE [Concomitant]
     Dosage: 1 PER DAY AT MORNING
     Route: 065
  3. TIAZAC [Concomitant]
     Dosage: 1 PER DAY A.M. (TIAZAC)
     Route: 065
  4. OMEPRAZOLE [Concomitant]
     Dosage: 1 PER DAY BEFORE DINNER
     Route: 065
  5. TRICOR [Concomitant]
     Dosage: 1 PER DAY WITH DINNER
     Route: 065
  6. DIAZEPAM [Concomitant]
     Dosage: 2 PER DAY 1 IN A.M./1 BEDTIME
     Route: 065
  7. ALENDRONATE [Concomitant]
     Route: 065
  8. AMITRIPTYLINE HYDROCHLORIDE/DIAZEPAM/PERPHENAZINE [Concomitant]
     Route: 065
  9. VITAMIN B12 [Concomitant]
     Route: 065
  10. BACLOFEN [Concomitant]
     Route: 065
  11. TRAMADOL HYDROCHLORIDE [Concomitant]
     Dosage: 1 TO 3 PER DAY
     Route: 065
  12. ADVAIR [Concomitant]
     Route: 065
  13. MIRALAX [Concomitant]
     Route: 065
  14. ASPIRIN [Concomitant]
     Route: 065
  15. FISH OIL [Concomitant]
     Route: 065
  16. SUMATRIPTAN SUCCINATE [Concomitant]
     Indication: HEADACHE
     Route: 065
  17. DESOXIMETASONE [Concomitant]
     Indication: ECZEMA
     Dosage: TWICE DAILY AS NEEDED?STRENGTH: 0.25 %
     Route: 065

REACTIONS (5)
  - Multiple sclerosis relapse [Unknown]
  - Sensory loss [Not Recovered/Not Resolved]
  - Sensory disturbance [Not Recovered/Not Resolved]
  - Hypoaesthesia [Not Recovered/Not Resolved]
  - Paraesthesia [Not Recovered/Not Resolved]
